FAERS Safety Report 21937504 (Version 1)
Quarter: 2023Q1

REPORT INFORMATION
  Report Type: Spontaneous
  Country: FR (occurrence: FR)
  Receive Date: 20230201
  Receipt Date: 20230201
  Transmission Date: 20230417
  Serious: Yes (Other)
  Sender: FDA-Public Use
  Company Number: FR-VERTEX PHARMACEUTICALS-2022-019116

PATIENT

DRUGS (9)
  1. ISOTRETINOIN [Suspect]
     Active Substance: ISOTRETINOIN
     Indication: Skin mass
     Dosage: UNK
     Route: 048
  2. ISOTRETINOIN [Suspect]
     Active Substance: ISOTRETINOIN
     Indication: Acne
  3. ISOTRETINOIN [Suspect]
     Active Substance: ISOTRETINOIN
     Indication: Dermatitis acneiform
  4. ISOTRETINOIN [Suspect]
     Active Substance: ISOTRETINOIN
     Indication: Acne pustular
  5. ELEXACAFTOR\IVACAFTOR\TEZACAFTOR [Suspect]
     Active Substance: ELEXACAFTOR\IVACAFTOR\TEZACAFTOR
     Indication: Cystic fibrosis
     Dosage: UNKNOWN DOSAGE REGIMEN
     Route: 048
  6. AZITHROMYCIN [Concomitant]
     Active Substance: AZITHROMYCIN
     Indication: Acne pustular
     Dosage: INCREASED DOSE TO 500 MG THRICE WEEKLY
     Route: 065
  7. AZITHROMYCIN [Concomitant]
     Active Substance: AZITHROMYCIN
     Indication: Dermatitis acneiform
     Dosage: 250 MG THRICE WEEKLY
     Route: 065
  8. AZITHROMYCIN [Concomitant]
     Active Substance: AZITHROMYCIN
     Indication: Acne
  9. AZITHROMYCIN [Concomitant]
     Active Substance: AZITHROMYCIN
     Indication: Skin mass

REACTIONS (13)
  - Blood creatine phosphokinase increased [Recovering/Resolving]
  - Scar [Unknown]
  - Skin mass [Unknown]
  - Tinea versicolour [Unknown]
  - Dermatitis acneiform [Unknown]
  - Acne pustular [Unknown]
  - Folliculitis [Unknown]
  - Seborrhoea [Unknown]
  - Rash maculo-papular [Unknown]
  - Bacterial infection [Unknown]
  - Anxiety [Unknown]
  - Acne [Unknown]
  - Post inflammatory pigmentation change [Unknown]
